FAERS Safety Report 7101679-6 (Version None)
Quarter: 2010Q4

REPORT INFORMATION
  Report Type: 
  Country: None (occurrence: None)
  Receive Date: 20101115
  Receipt Date: 20101104
  Transmission Date: 20110411
  Serious: Yes (Death, Other)
  Sender: FDA-Public Use
  Company Number: US-AMGEN-USASP2010003557

PATIENT

DRUGS (2)
  1. SENSIPAR [Suspect]
     Indication: HYPERPARATHYROIDISM SECONDARY
     Dosage: 30 MG, QD
  2. SENSIPAR [Suspect]
     Indication: CALCIPHYLAXIS

REACTIONS (2)
  - BLOOD PHOSPHORUS ABNORMAL [None]
  - MYOCARDIAL INFARCTION [None]
